FAERS Safety Report 9393079 (Version 2)
Quarter: 2013Q3

REPORT INFORMATION
  Report Type: Spontaneous
  Country: FR (occurrence: FR)
  Receive Date: 20130710
  Receipt Date: 20130906
  Transmission Date: 20140515
  Serious: Yes (Hospitalization)
  Sender: FDA-Public Use
  Company Number: FR-MERCK-1307FRA000432

PATIENT
  Age: 54 Year
  Sex: Male

DRUGS (6)
  1. JANUMET [Suspect]
     Dosage: 1 DF, BID
     Route: 048
     Dates: start: 201206, end: 201306
  2. CYMBALTA [Concomitant]
     Dosage: 30 MG, QD
  3. TAHOR [Concomitant]
     Dosage: 10 MG, QD
  4. RAMIPRIL [Concomitant]
     Dosage: 5 MG, QD
  5. DIAMICRON [Concomitant]
     Dosage: 120 MG, QD
  6. KARDEGIC [Concomitant]
     Dosage: 75 MG, QD

REACTIONS (3)
  - Hyperlipasaemia [Unknown]
  - Pancreatic pseudocyst [Unknown]
  - Abdominal pain [Recovered/Resolved]
